FAERS Safety Report 5257659-9 (Version None)
Quarter: 2007Q1

REPORT INFORMATION
  Report Type: 
  Country: None (occurrence: None)
  Receive Date: 20070302
  Receipt Date: 20070216
  Transmission Date: 20070707
  Serious: No
  Sender: FDA-Public Use
  Company Number: 2007-154625-NL

PATIENT
  Age: 73 Year
  Sex: Female

DRUGS (4)
  1. VECURONIUM BROMIDE [Suspect]
     Indication: ANAESTHESIA
     Dosage: NI INTRAVENOUS (NOS)
     Route: 042
     Dates: start: 20070214, end: 20070214
  2. ISOFLURANE [Suspect]
     Indication: ANAESTHESIA
     Dosage: RESPIRATORY (INHALATION)
     Route: 055
     Dates: start: 20070214, end: 20070214
  3. THIAMYLAL [Suspect]
     Indication: ANAESTHESIA
     Dosage: INTRAVENOUS (NOS)
     Route: 042
     Dates: start: 20070214, end: 20070214
  4. KETAMINE HYDROCHLORIDE [Suspect]
     Indication: ANAESTHESIA
     Dosage: INTRAVENOUS (NOS)
     Route: 042
     Dates: start: 20070214, end: 20070214

REACTIONS (2)
  - NEUROMUSCULAR BLOCK PROLONGED [None]
  - RESPIRATORY DEPRESSION [None]
